FAERS Safety Report 5213877-7 (Version None)
Quarter: 2007Q1

REPORT INFORMATION
  Report Type: 
  Country: None (occurrence: None)
  Receive Date: 20070117
  Receipt Date: 20070112
  Transmission Date: 20070707
  Serious: Yes (Other)
  Sender: FDA-Public Use
  Company Number: 009923

PATIENT
  Age: 72 Year
  Sex: Female

DRUGS (3)
  1. MEDROXYPROGESTERONE [Suspect]
     Dosage: ORAL
     Route: 048
     Dates: start: 20030101, end: 20030201
  2. PREMARIN [Suspect]
     Dosage: ORAL
     Route: 048
     Dates: start: 19850101, end: 20050101
  3. PROVERA [Suspect]
     Dosage: ORAL
     Route: 048
     Dates: start: 19850101, end: 20030801

REACTIONS (1)
  - BREAST CANCER FEMALE [None]
